FAERS Safety Report 7247780-8 (Version None)
Quarter: 2011Q1

REPORT INFORMATION
  Report Type: 
  Country: None (occurrence: None)
  Receive Date: 20110127
  Receipt Date: 20110114
  Transmission Date: 20110831
  Serious: Yes (Other)
  Sender: FDA-Public Use
  Company Number: US-ELI_LILLY_AND_COMPANY-US201101000391

PATIENT
  Age: 41 Year
  Sex: Male

DRUGS (11)
  1. CYMBALTA [Suspect]
     Dosage: 60 MG, EACH MORNING
  2. REMERON /USA/ [Concomitant]
  3. CYMBALTA [Suspect]
     Dosage: 30 MG, EACH EVENING
     Dates: start: 20101001
  4. AMBIEN [Concomitant]
     Dosage: UNK, AS NEEDED
  5. MULTI-VITAMIN [Concomitant]
  6. CYMBALTA [Suspect]
     Dosage: 60 MG, EACH MORNING
     Dates: start: 20101001
  7. VALIUM [Concomitant]
     Indication: ANXIETY
     Dosage: UNK, AS NEEDED
  8. CYMBALTA [Suspect]
     Indication: GENERALISED ANXIETY DISORDER
     Dosage: 30 MG, EACH MORNING
     Dates: start: 20090101
  9. CYMBALTA [Suspect]
     Dosage: 60 MG, EACH MORNING
     Dates: start: 20100101, end: 20110101
  10. HYDROCODONE [Concomitant]
  11. CYMBALTA [Suspect]
     Dosage: 60 MG, 2/D
     Dates: start: 20101101

REACTIONS (8)
  - LETHARGY [None]
  - FEELING ABNORMAL [None]
  - DYSURIA [None]
  - HEPATITIS C [None]
  - DIZZINESS [None]
  - URINE ODOUR ABNORMAL [None]
  - DRUG SCREEN POSITIVE [None]
  - MENTAL DISORDER [None]
